FAERS Safety Report 15792580 (Version 4)
Quarter: 2020Q1

REPORT INFORMATION
  Report Type: Report from Study
  Country: DE (occurrence: DE)
  Receive Date: 20190107
  Receipt Date: 20200117
  Transmission Date: 20200409
  Serious: Yes (Hospitalization, Other)
  Sender: FDA-Public Use
  Company Number: DE-ROCHE-2141653

PATIENT
  Age: 62 Year
  Sex: Female

DRUGS (15)
  1. OCREVUS [Suspect]
     Active Substance: OCRELIZUMAB
     Route: 042
     Dates: start: 20181105
  2. DEKRISTOL [Concomitant]
     Active Substance: CHOLECALCIFEROL
     Route: 065
  3. OCREVUS [Suspect]
     Active Substance: OCRELIZUMAB
     Indication: SECONDARY PROGRESSIVE MULTIPLE SCLEROSIS
     Dosage: SECOND INFUSION: 07/MAY/2018
     Route: 042
     Dates: start: 20180423
  4. PRAMIPEXOL [PRAMIPEXOLE] [Concomitant]
     Active Substance: PRAMIPEXOLE
     Dosage: 0.35 UNIT NOT REPORTED?3-3-3
     Route: 065
  5. UTIPRO PLUS [Concomitant]
     Route: 065
  6. AMLODIPINE [Concomitant]
     Active Substance: AMLODIPINE BESYLATE
     Route: 065
  7. GABAPENTIN. [Concomitant]
     Active Substance: GABAPENTIN
     Dosage: 1-1-3
     Route: 065
  8. IBUPROFEN. [Concomitant]
     Active Substance: IBUPROFEN
     Route: 065
  9. METOPROLOL. [Concomitant]
     Active Substance: METOPROLOL
     Route: 065
  10. DRONABINOL. [Concomitant]
     Active Substance: DRONABINOL
     Dosage: 10-0-10?DROPS
     Route: 065
  11. ASPIRIN. [Concomitant]
     Active Substance: ASPIRIN
     Route: 065
  12. VOMACUR [Concomitant]
     Active Substance: DIMENHYDRINATE
     Route: 065
  13. SIMVASTATIN. [Concomitant]
     Active Substance: SIMVASTATIN
     Route: 065
  14. SATIVEX [Concomitant]
     Active Substance: NABIXIMOLS
     Dosage: SPRAY
     Route: 065
  15. PANTOPRAZOL [PANTOPRAZOLE] [Concomitant]
     Active Substance: PANTOPRAZOLE
     Route: 065

REACTIONS (13)
  - Dysstasia [Not Recovered/Not Resolved]
  - Intentional product use issue [Unknown]
  - Urinary tract infection [Recovered/Resolved]
  - Off label use [Unknown]
  - Asthenia [Unknown]
  - Muscle spasticity [Recovering/Resolving]
  - Cystitis bacterial [Recovered/Resolved]
  - Muscle spasticity [Recovering/Resolving]
  - Gait disturbance [Not Recovered/Not Resolved]
  - Fatigue [Recovered/Resolved]
  - Mobility decreased [Unknown]
  - Pain in extremity [Recovered/Resolved]
  - Drug ineffective [Unknown]

NARRATIVE: CASE EVENT DATE: 20180423
